FAERS Safety Report 18171178 (Version 15)
Quarter: 2022Q3

REPORT INFORMATION
  Report Type: Report from Study
  Country: CA (occurrence: CA)
  Receive Date: 20200819
  Receipt Date: 20220623
  Transmission Date: 20221027
  Serious: Yes (Hospitalization, Other)
  Sender: FDA-Public Use
  Company Number: PHHY2018CA077446

PATIENT
  Age: 54 Year
  Sex: Male

DRUGS (8)
  1. SANDOSTATIN [Suspect]
     Active Substance: OCTREOTIDE ACETATE
     Indication: Neuroendocrine tumour
     Dosage: 150 UG, BID
     Route: 058
     Dates: start: 201803, end: 20180331
  2. SANDOSTATIN [Suspect]
     Active Substance: OCTREOTIDE ACETATE
     Indication: Metastatic carcinoid tumour
  3. SANDOSTATIN [Suspect]
     Active Substance: OCTREOTIDE ACETATE
  4. SANDOSTATIN LAR DEPOT [Suspect]
     Active Substance: OCTREOTIDE ACETATE
     Indication: Neuroendocrine tumour
     Dosage: 20 MG, Q4W (EVERY 4 WEEKS)
     Route: 030
     Dates: start: 20180425
  5. SANDOSTATIN LAR DEPOT [Suspect]
     Active Substance: OCTREOTIDE ACETATE
     Indication: Metastatic carcinoid tumour
  6. DILTIAZEM HYDROCHLORIDE [Concomitant]
     Active Substance: DILTIAZEM HYDROCHLORIDE
     Indication: Blood pressure measurement
     Dosage: 180 MG
     Route: 048
  7. ADVAIR DISKUS [Concomitant]
     Active Substance: FLUTICASONE PROPIONATE\SALMETEROL XINAFOATE
     Indication: Asthma
     Dosage: UNK UNK, BID
     Route: 055
  8. NASONEX [Concomitant]
     Active Substance: MOMETASONE FUROATE
     Indication: Rhinitis allergic
     Dosage: UNK UNK, QD
     Route: 065

REACTIONS (28)
  - Nephrolithiasis [Unknown]
  - Back pain [Recovered/Resolved]
  - Blood pressure systolic increased [Unknown]
  - Fatigue [Unknown]
  - Nasal congestion [Unknown]
  - Rhinorrhoea [Unknown]
  - Chills [Recovered/Resolved]
  - Pain [Recovered/Resolved]
  - Rhinitis allergic [Unknown]
  - Productive cough [Unknown]
  - Sinusitis [Unknown]
  - Sinus pain [Recovered/Resolved]
  - Vision blurred [Unknown]
  - Haemoglobin decreased [Unknown]
  - Musculoskeletal stiffness [Unknown]
  - Bronchitis [Unknown]
  - Chills [Unknown]
  - Back pain [Unknown]
  - Dyskinesia [Unknown]
  - Bone pain [Unknown]
  - Blood pressure increased [Unknown]
  - Myalgia [Unknown]
  - Asthenia [Unknown]
  - Dizziness [Unknown]
  - Diarrhoea [Unknown]
  - Vomiting [Unknown]
  - Seasonal allergy [Unknown]
  - Bronchial irritation [Unknown]

NARRATIVE: CASE EVENT DATE: 20181107
